FAERS Safety Report 13983533 (Version 2)
Quarter: 2017Q3

REPORT INFORMATION
  Report Type: Spontaneous
  Country: US (occurrence: US)
  Receive Date: 20170918
  Receipt Date: 20170920
  Transmission Date: 20171128
  Serious: No
  Sender: FDA-Public Use
  Company Number: US-RECKITT BENCKISER HEALTHCARE INT LIMITED-RB-94639-2016

PATIENT
  Age: 76 Year
  Sex: Female

DRUGS (2)
  1. MUCINEX [Suspect]
     Active Substance: GUAIFENESIN
     Indication: ASTHMA
     Dosage: WHEN NEEDED
     Route: 065
     Dates: start: 201602, end: 201602
  2. MUCINEX [Suspect]
     Active Substance: GUAIFENESIN
     Indication: RESPIRATORY TRACT CONGESTION

REACTIONS (2)
  - No adverse event [Unknown]
  - Product use in unapproved indication [Unknown]
